FAERS Safety Report 9895832 (Version 2)
Quarter: 2014Q1

REPORT INFORMATION
  Report Type: Spontaneous
  Country: US (occurrence: US)
  Receive Date: 20140213
  Receipt Date: 20140213
  Transmission Date: 20141002
  Serious: No
  Sender: FDA-Public Use
  Company Number: US-BRISTOL-MYERS SQUIBB COMPANY-17245457

PATIENT
  Age: 66 Year
  Sex: Female
  Weight: 53.06 kg

DRUGS (2)
  1. ORENCIA [Suspect]
     Indication: RHEUMATOID ARTHRITIS
     Dosage: LAST INFUSION:  12DEC2012
  2. LASIX [Concomitant]

REACTIONS (2)
  - Oedema [Unknown]
  - Weight increased [Unknown]
